FAERS Safety Report 8826314 (Version 2)
Quarter: 2012Q4

REPORT INFORMATION
  Report Type: 
  Country: AU (occurrence: AU)
  Receive Date: 20121005
  Receipt Date: 20121030
  Transmission Date: 20130627
  Serious: Yes (Death, Other)
  Sender: FDA-Public Use
  Company Number: AU-BRISTOL-MYERS SQUIBB COMPANY-17003328

PATIENT
  Age: 70 Year

DRUGS (12)
  1. BICNU [Suspect]
     Indication: LYMPHOMA
     Dosage: vial
     Dates: start: 20120225
  2. ETOPOSIDE [Suspect]
  3. CYTARABINE [Suspect]
  4. MELPHALAN [Suspect]
  5. ALLOPURINOL [Concomitant]
  6. OMEPRAZOLE [Concomitant]
  7. ONDANSETRON [Concomitant]
  8. DEXAMETHASONE [Concomitant]
  9. METHOTREXATE [Concomitant]
  10. LENOGRASTIM [Concomitant]
  11. VALTREX [Concomitant]
  12. APREPITANT [Concomitant]

REACTIONS (4)
  - Pulmonary embolism [Fatal]
  - Myocardial ischaemia [Fatal]
  - Stem cell transplant [Unknown]
  - Febrile neutropenia [Unknown]
